FAERS Safety Report 4537213-4 (Version None)
Quarter: 2004Q4

REPORT INFORMATION
  Report Type: 
  Country: None (occurrence: None)
  Receive Date: 20041223
  Receipt Date: 20041215
  Transmission Date: 20050328
  Serious: Yes (Disabling)
  Sender: FDA-Public Use
  Company Number: PHBS2004JP16940

PATIENT

DRUGS (1)
  1. VOLTAREN [Suspect]
     Route: 048

REACTIONS (1)
  - CHOLESTASIS [None]
